FAERS Safety Report 17284142 (Version 3)
Quarter: 2020Q2

REPORT INFORMATION
  Report Type: Report from Study
  Country: None (occurrence: US)
  Receive Date: 20200117
  Receipt Date: 20200512
  Transmission Date: 20200713
  Serious: Yes (Other)
  Sender: FDA-Public Use
  Company Number: US-ABBVIE-19K-163-3007572-00

PATIENT
  Age: 28 Year
  Sex: Female

DRUGS (4)
  1. HUMIRA [Suspect]
     Active Substance: ADALIMUMAB
     Indication: CROHN^S DISEASE
     Dosage: DAY 1
     Route: 058
     Dates: start: 201912, end: 201912
  2. HUMIRA [Suspect]
     Active Substance: ADALIMUMAB
     Dosage: DAY 15
     Route: 058
  3. HUMIRA [Suspect]
     Active Substance: ADALIMUMAB
     Route: 058
  4. HUMIRA [Suspect]
     Active Substance: ADALIMUMAB
     Indication: CROHN^S DISEASE
     Dosage: DAY 1
     Route: 058
     Dates: start: 20191104, end: 20191104

REACTIONS (18)
  - Speech disorder [Unknown]
  - Tracheostomy [Unknown]
  - Haemorrhoidal haemorrhage [Recovering/Resolving]
  - Insomnia [Unknown]
  - Mental impairment [Unknown]
  - Heart rate increased [Unknown]
  - Abnormal faeces [Unknown]
  - Upper respiratory tract congestion [Unknown]
  - Wheelchair user [Unknown]
  - Rhinorrhoea [Unknown]
  - Abdominal pain upper [Recovering/Resolving]
  - Pyrexia [Unknown]
  - Diarrhoea [Recovered/Resolved]
  - Tracheostomy malfunction [Unknown]
  - Weight decreased [Recovering/Resolving]
  - Nasopharyngitis [Unknown]
  - Diarrhoea [Not Recovered/Not Resolved]
  - Frequent bowel movements [Unknown]

NARRATIVE: CASE EVENT DATE: 201912
